FAERS Safety Report 21094182 (Version 5)
Quarter: 2022Q3

REPORT INFORMATION
  Report Type: Report from Study
  Country: CN (occurrence: None)
  Receive Date: 20220718
  Receipt Date: 20220914
  Transmission Date: 20221027
  Serious: Yes (Hospitalization)
  Sender: FDA-Public Use
  Company Number: CN-ROCHE-3139964

PATIENT
  Age: 57 Year
  Sex: Female
  Weight: 68.3 kg

DRUGS (14)
  1. PRALSETINIB [Suspect]
     Active Substance: PRALSETINIB
     Indication: Non-small cell lung cancer
     Dosage: ON 08/JUL/2022, SHE RECEIVED THE MOST RECENT DOSE OF PRALSETINIB PRIOR TO THE ADVERSE EVENT.?ON 30/J
     Route: 048
     Dates: start: 20200424, end: 20220709
  2. PRALSETINIB [Suspect]
     Active Substance: PRALSETINIB
     Route: 048
  3. PRALSETINIB [Suspect]
     Active Substance: PRALSETINIB
     Dosage: ON 30/JUL/2022, SHE RECEIVED THE MOST RECENT DOSE OF PRALSETINIB PRIOR TO THE ADVERSE EVENT, 200MG.
     Route: 048
  4. INSULIN GLARGINE [Concomitant]
     Active Substance: INSULIN GLARGINE
  5. ROSUVASTATIN CALCIUM [Concomitant]
     Active Substance: ROSUVASTATIN CALCIUM
  6. CALCIUM CARBONATE;COLECALCIFEROL;FOLIC ACID;HYDROXOCOBALAMIN;POLICOSAN [Concomitant]
  7. LEVOTHYROXINE SODIUM [Concomitant]
     Active Substance: LEVOTHYROXINE SODIUM
  8. MEDROXYPROGESTERONE ACETATE [Concomitant]
     Active Substance: MEDROXYPROGESTERONE ACETATE
  9. VITAMIN B6 [Concomitant]
     Active Substance: PYRIDOXINE HYDROCHLORIDE
  10. VITAMIN C [Concomitant]
     Active Substance: ASCORBIC ACID
  11. OMEPRAZOLE [Concomitant]
     Active Substance: OMEPRAZOLE
  12. MEGESTROL ACETATE [Concomitant]
     Active Substance: MEGESTROL ACETATE
  13. KETOROLAC [Concomitant]
     Active Substance: KETOROLAC TROMETHAMINE
     Indication: Analgesic therapy
     Route: 042
     Dates: start: 20220814, end: 20220826
  14. GOLD [Concomitant]
     Active Substance: GOLD
     Dates: start: 20220814, end: 20220826

REACTIONS (2)
  - Decreased appetite [Recovered/Resolved with Sequelae]
  - Intervertebral disc protrusion [Recovered/Resolved]

NARRATIVE: CASE EVENT DATE: 20220709
